FAERS Safety Report 13045657 (Version 1)
Quarter: 2016Q4

REPORT INFORMATION
  Report Type: Spontaneous
  Country: US (occurrence: US)
  Receive Date: 20161220
  Receipt Date: 20161220
  Transmission Date: 20170207
  Serious: Yes (Hospitalization, Disabling, Other)
  Sender: FDA-Public Use
  Company Number: None

PATIENT
  Age: 56 Year
  Sex: Female
  Weight: 76.27 kg

DRUGS (21)
  1. ATORVASTATIN CAL (LIPITOR) [Concomitant]
  2. BENADRYL [Concomitant]
     Active Substance: DIPHENHYDRAMINE HYDROCHLORIDE
  3. ENBREL [Suspect]
     Active Substance: ETANERCEPT
     Indication: FIBROMYALGIA
     Dosage: ?          QUANTITY::LUJUT ?0?? BUTT ANEW? LT;?
     Route: 058
     Dates: start: 20160216, end: 20160518
  4. ASPIRIN. [Concomitant]
     Active Substance: ASPIRIN
  5. VITAMIN D [Concomitant]
     Active Substance: CHOLECALCIFEROL
  6. HCTZ [Concomitant]
     Active Substance: HYDROCHLOROTHIAZIDE
  7. CLONAZEPAM (KLONOPIN) [Concomitant]
  8. ENBREL [Suspect]
     Active Substance: ETANERCEPT
     Indication: RHEUMATOID ARTHRITIS
     Dosage: ?          QUANTITY::LUJUT ?0?? BUTT ANEW? LT;?
     Route: 058
     Dates: start: 20160216, end: 20160518
  9. ENBREL [Suspect]
     Active Substance: ETANERCEPT
     Indication: OSTEOARTHRITIS
     Dosage: ?          QUANTITY::LUJUT ?0?? BUTT ANEW? LT;?
     Route: 058
     Dates: start: 20160216, end: 20160518
  10. BESYLATE (NORVASC) [Concomitant]
  11. METFORMIN [Concomitant]
     Active Substance: METFORMIN HYDROCHLORIDE
  12. NABUMETONE (RELAFEM) [Concomitant]
  13. BENAZAPRIL HCL [Concomitant]
  14. MVI [Concomitant]
     Active Substance: VITAMINS
  15. CENTRUM SILVER [Concomitant]
     Active Substance: MINERALS\VITAMINS
  16. DOCULATE SOD [Concomitant]
  17. CYCLOBENZAPRINE HCL (FLEXERIL) [Concomitant]
  18. AMLODIPINE [Concomitant]
     Active Substance: AMLODIPINE BESYLATE
  19. CLONIDINE. [Concomitant]
     Active Substance: CLONIDINE
  20. TRAMADOL HCL [Concomitant]
     Active Substance: TRAMADOL HYDROCHLORIDE
  21. POTASSIUM CHL [Concomitant]

REACTIONS (2)
  - Breast cancer [None]
  - Breast mass [None]

NARRATIVE: CASE EVENT DATE: 20160220
